FAERS Safety Report 6099317-7 (Version None)
Quarter: 2009Q1

REPORT INFORMATION
  Report Type: 
  Country: None (occurrence: None)
  Receive Date: 20090226
  Receipt Date: 20090226
  Transmission Date: 20090719
  Serious: Yes (Hospitalization)
  Sender: FDA-Public Use
  Company Number: None

PATIENT
  Sex: Female
  Weight: 83 kg

DRUGS (8)
  1. CYCLOPHOSPHAMIDE [Suspect]
     Dosage: 1200 MG
  2. DOXORUBICIN HCL [Suspect]
     Dosage: 120 MG
  3. ASPIRIN [Concomitant]
  4. JANUVIA [Concomitant]
  5. LIPITOR [Concomitant]
  6. PAXIL [Concomitant]
  7. PREVACID [Concomitant]
  8. SYNTHROID [Concomitant]

REACTIONS (1)
  - FEBRILE NEUTROPENIA [None]
